FAERS Safety Report 11196376 (Version 2)
Quarter: 2015Q3

REPORT INFORMATION
  Report Type: Spontaneous
  Country: US (occurrence: US)
  Receive Date: 20150617
  Receipt Date: 20150814
  Transmission Date: 20151125
  Serious: Yes (Other)
  Sender: FDA-Public Use
  Company Number: US-BAYER-2015-351427

PATIENT
  Age: 34 Year
  Sex: Female
  Weight: 70.3 kg

DRUGS (14)
  1. MIRENA [Suspect]
     Active Substance: LEVONORGESTREL
     Indication: CONTRACEPTION
     Dosage: 20 MCG/24HR, CONT
     Route: 015
     Dates: start: 20080820, end: 20111114
  2. MACROBID [Concomitant]
     Active Substance: NITROFURANTOIN\NITROFURANTOIN MONOHYDRATE
  3. ZITHROMAX [Concomitant]
     Active Substance: AZITHROMYCIN DIHYDRATE
  4. BACTRIM DS [Concomitant]
     Active Substance: SULFAMETHOXAZOLE\TRIMETHOPRIM
  5. MOTRIN [Concomitant]
     Active Substance: IBUPROFEN
  6. CIPRO [Concomitant]
     Active Substance: CIPROFLOXACIN HYDROCHLORIDE
  7. PYRIDIUM [Concomitant]
     Active Substance: PHENAZOPYRIDINE
  8. ROCEPHIN [Concomitant]
     Active Substance: CEFTRIAXONE SODIUM
  9. DOXYCYCLINE. [Concomitant]
     Active Substance: DOXYCYCLINE
  10. FLEXERIL [Concomitant]
     Active Substance: CYCLOBENZAPRINE HYDROCHLORIDE
  11. TORADOL [Concomitant]
     Active Substance: KETOROLAC TROMETHAMINE
  12. FLAGYL [Concomitant]
     Active Substance: METRONIDAZOLE\METRONIDAZOLE HYDROCHLORIDE
  13. MIRENA [Suspect]
     Active Substance: LEVONORGESTREL
     Indication: CONTRACEPTION
     Dosage: 20 MCG/24HR, CONT
     Route: 015
     Dates: start: 20130828, end: 20140929
  14. DIFLUCAN [Concomitant]
     Active Substance: FLUCONAZOLE

REACTIONS (12)
  - Ovarian cyst [None]
  - Device dislocation [None]
  - Uterine perforation [None]
  - Migraine [None]
  - Dyspareunia [Recovered/Resolved]
  - Injury [None]
  - Device issue [None]
  - Pelvic inflammatory disease [Recovered/Resolved]
  - Device difficult to use [None]
  - Dysmenorrhoea [None]
  - Abdominal pain [None]
  - Menorrhagia [None]

NARRATIVE: CASE EVENT DATE: 2010
